FAERS Safety Report 5455641-X (Version None)
Quarter: 2007Q3

REPORT INFORMATION
  Report Type: 
  Country: None (occurrence: None)
  Receive Date: 20070913
  Receipt Date: 20070913
  Transmission Date: 20080115
  Serious: Yes (Hospitalization)
  Sender: FDA-Public Use
  Company Number: None

PATIENT
  Age: 62 Year
  Sex: Female
  Weight: 74.8435 kg

DRUGS (7)
  1. AVELOX [Suspect]
     Indication: RESPIRATORY DISORDER
     Dosage: 400MG 1 DOSE PO 1X DOSE ONLY
     Route: 048
     Dates: start: 20070422, end: 20070423
  2. AVELOX [Suspect]
     Indication: SELF-MEDICATION
     Dosage: 400MG 1 DOSE PO 1X DOSE ONLY
     Route: 048
     Dates: start: 20070422, end: 20070423
  3. VYTORIN [Concomitant]
  4. ASPIRIN [Concomitant]
  5. DARVOCET [Concomitant]
  6. LASIX [Concomitant]
  7. XANAX [Concomitant]

REACTIONS (9)
  - DIZZINESS [None]
  - ERYTHEMA [None]
  - HYPERHIDROSIS [None]
  - HYPOTENSION [None]
  - MEDICATION ERROR [None]
  - NAUSEA [None]
  - PALLOR [None]
  - RESPIRATORY TRACT INFECTION [None]
  - VOMITING [None]
